FAERS Safety Report 13563061 (Version 4)
Quarter: 2017Q4

REPORT INFORMATION
  Report Type: Report from Study
  Country: US (occurrence: US)
  Receive Date: 20170519
  Receipt Date: 20171221
  Transmission Date: 20180320
  Serious: Yes (Hospitalization, Other)
  Sender: FDA-Public Use
  Company Number: US-AMGEN-USASL2017073716

PATIENT
  Age: 48 Year
  Sex: Female

DRUGS (3)
  1. NEOMYCIN. [Suspect]
     Active Substance: NEOMYCIN
     Indication: PRODUCT USED FOR UNKNOWN INDICATION
     Dosage: UNK
     Route: 065
  2. HUMIRA [Suspect]
     Active Substance: ADALIMUMAB
     Indication: PRODUCT USED FOR UNKNOWN INDICATION
     Dosage: UNK
     Route: 065
  3. ENBREL [Suspect]
     Active Substance: ETANERCEPT
     Indication: RHEUMATOID ARTHRITIS
     Dosage: 50 MG, QWK
     Route: 058

REACTIONS (17)
  - Toe operation [Unknown]
  - Influenza like illness [Recovered/Resolved]
  - Contusion [Unknown]
  - Injection site reaction [Unknown]
  - Multiple organ dysfunction syndrome [Unknown]
  - Haemoglobin abnormal [Unknown]
  - Peripheral swelling [Unknown]
  - Pain in extremity [Unknown]
  - Unevaluable event [Unknown]
  - Eye haemorrhage [Unknown]
  - Visual impairment [Unknown]
  - Erythema [Unknown]
  - Pneumonia [Unknown]
  - Headache [Unknown]
  - Blood blister [Unknown]
  - Central venous catheter removal [Unknown]
  - Furuncle [Unknown]

NARRATIVE: CASE EVENT DATE: 2014
